FAERS Safety Report 6954238-X (Version None)
Quarter: 2010Q3

REPORT INFORMATION
  Report Type: 
  Country: None (occurrence: None)
  Receive Date: 20100829
  Receipt Date: 20100706
  Transmission Date: 20110219
  Serious: No
  Sender: FDA-Public Use
  Company Number: US-ABBOTT-10P-163-0656456-00

PATIENT
  Age: 60 Year
  Sex: Male
  Weight: 96.248 kg

DRUGS (12)
  1. NIASPAN [Suspect]
     Indication: BLOOD CHOLESTEROL INCREASED
     Dosage: 500 MG DAILY AT BEDTIME
     Route: 048
     Dates: start: 20100614, end: 20100619
  2. NIASPAN [Suspect]
     Dosage: 500 MG DAILY AT BEDTIME
     Route: 048
     Dates: start: 20100701, end: 20100703
  3. METOPROLOL [Concomitant]
     Indication: PRODUCT USED FOR UNKNOWN INDICATION
     Dosage: DAILY IN MORNING
     Route: 048
  4. LIPITOR [Concomitant]
     Indication: PRODUCT USED FOR UNKNOWN INDICATION
     Dosage: DAILY IN MORNING
     Route: 048
  5. LOVAZA [Concomitant]
     Indication: PRODUCT USED FOR UNKNOWN INDICATION
  6. CENTRUM SILVER MULTIVITAMIN [Concomitant]
     Indication: PRODUCT USED FOR UNKNOWN INDICATION
     Route: 048
  7. VITAMIN D3 [Concomitant]
     Indication: PRODUCT USED FOR UNKNOWN INDICATION
  8. GLUCOSAMINE [Concomitant]
     Indication: PRODUCT USED FOR UNKNOWN INDICATION
  9. ASPIRIN [Concomitant]
     Indication: PRODUCT USED FOR UNKNOWN INDICATION
     Dosage: DAILY 1.5 HOURS BEFORE NIASPAN ER
     Route: 048
     Dates: start: 20100618, end: 20100703
  10. ASPIRIN [Concomitant]
     Route: 048
     Dates: end: 20100618
  11. ALEVE (CAPLET) [Concomitant]
     Indication: ARTHRALGIA
     Dosage: 220 MG DAILY WITH BREAKFAST
     Route: 048
  12. ALEVE (CAPLET) [Concomitant]
     Indication: PAIN

REACTIONS (5)
  - FEELING HOT [None]
  - MIDDLE INSOMNIA [None]
  - PARAESTHESIA [None]
  - PRURITUS [None]
  - RASH MACULAR [None]
